FAERS Safety Report 18326037 (Version 1)
Quarter: 2020Q3

REPORT INFORMATION
  Report Type: Spontaneous
  Country: CO (occurrence: CO)
  Receive Date: 20200929
  Receipt Date: 20200929
  Transmission Date: 20201103
  Serious: Yes (Other)
  Sender: FDA-Public Use
  Company Number: CO-POPULATION COUNCIL-2020TPC000027

PATIENT
  Age: 13 Year
  Sex: Female

DRUGS (1)
  1. JADELLE [Suspect]
     Active Substance: LEVONORGESTREL
     Indication: PRODUCT USED FOR UNKNOWN INDICATION
     Route: 058

REACTIONS (10)
  - Amenorrhoea [Unknown]
  - Neuritis [Unknown]
  - Rash papular [Unknown]
  - Lymphadenitis [Unknown]
  - Alopecia [Unknown]
  - Vision blurred [Unknown]
  - Diplopia [Unknown]
  - Gait disturbance [Unknown]
  - Pain in extremity [Unknown]
  - Neuralgia [Unknown]
